FAERS Safety Report 20845391 (Version 1)
Quarter: 2022Q2

REPORT INFORMATION
  Report Type: Spontaneous
  Country: US (occurrence: None)
  Receive Date: 20220518
  Receipt Date: 20220518
  Transmission Date: 20220721
  Serious: No
  Sender: FDA-Public Use
  Company Number: None

PATIENT
  Age: 79 Year
  Sex: Male
  Weight: 93.85 kg

DRUGS (8)
  1. ABIRATERONE [Suspect]
     Active Substance: ABIRATERONE
     Indication: Prostate cancer
     Dosage: FREQUENCY : DAILY;?
     Route: 048
  2. ASPIRIN [Concomitant]
  3. BYDUREON [Concomitant]
     Active Substance: EXENATIDE
  4. CARVEDILOL [Concomitant]
     Active Substance: CARVEDILOL
  5. ENALAPRIL [Concomitant]
     Active Substance: ENALAPRIL
  6. NIFEDIPINE [Concomitant]
     Active Substance: NIFEDIPINE
  7. PREDNISONE [Concomitant]
     Active Substance: PREDNISONE
  8. VITAMIN B12 [Concomitant]
     Active Substance: CYANOCOBALAMIN

REACTIONS (1)
  - Disease progression [None]
